FAERS Safety Report 9925921 (Version 1)
Quarter: 2014Q1

REPORT INFORMATION
  Report Type: Spontaneous
  Country: US (occurrence: US)
  Receive Date: 20140226
  Receipt Date: 20140226
  Transmission Date: 20141002
  Serious: No
  Sender: FDA-Public Use
  Company Number: US-GILEAD-2014-0095236

PATIENT
  Age: 62 Year
  Sex: Male

DRUGS (2)
  1. LETAIRIS [Suspect]
     Indication: PULMONARY ARTERIAL HYPERTENSION
     Dosage: 5 MG, QD
     Route: 048
     Dates: start: 20140213, end: 20140219
  2. BOTOX [Suspect]
     Indication: MIGRAINE
     Route: 065

REACTIONS (2)
  - Diplopia [Recovered/Resolved]
  - Vision blurred [Recovered/Resolved]
